FAERS Safety Report 9163229 (Version 1)
Quarter: 2013Q1

REPORT INFORMATION
  Report Type: Spontaneous
  Country: US (occurrence: US)
  Receive Date: 20130314
  Receipt Date: 20130314
  Transmission Date: 20140127
  Serious: Yes (Hospitalization, Other)
  Sender: FDA-Public Use
  Company Number: US-NICOBRDEV-2013-02003

PATIENT
  Age: 32 Year
  Sex: Male

DRUGS (7)
  1. GLIBENCLAMIDE [Suspect]
     Indication: TYPE 2 DIABETES MELLITUS
     Dosage: 5 MG, DAILY
     Route: 048
  2. FUROSEMIDE (UNKNOWN) [Suspect]
     Indication: CARDIAC FAILURE CONGESTIVE
     Dosage: UNK, UNKNOWN
     Route: 065
  3. ACETYLSALICYLIC ACID [Concomitant]
     Indication: PRODUCT USED FOR UNKNOWN INDICATION
     Dosage: UNK, UNKNOWN
     Route: 065
  4. CARVEDILOL [Concomitant]
     Indication: PRODUCT USED FOR UNKNOWN INDICATION
     Dosage: UNK, UNKNOWN
     Route: 065
  5. CITALOPRAM [Concomitant]
     Indication: PRODUCT USED FOR UNKNOWN INDICATION
     Dosage: UNK, UNKNOWN
     Route: 065
  6. ROSUVASTATIN [Concomitant]
     Indication: PRODUCT USED FOR UNKNOWN INDICATION
     Dosage: UNK, UNKNOWN
     Route: 065
  7. FERROUS SULFATE [Concomitant]
     Indication: PRODUCT USED FOR UNKNOWN INDICATION
     Dosage: UNK, UNKNOWN
     Route: 065

REACTIONS (3)
  - Hypoglycaemia [Recovered/Resolved]
  - Altered state of consciousness [Recovered/Resolved]
  - Renal failure acute [Recovered/Resolved]
